FAERS Safety Report 5048025-X (Version None)
Quarter: 2006Q3

REPORT INFORMATION
  Report Type: 
  Country: None (occurrence: None)
  Receive Date: 20060710
  Receipt Date: 20060710
  Transmission Date: 20061208
  Serious: Yes (Hospitalization)
  Sender: FDA-Public Use
  Company Number: None

PATIENT
  Age: 65 Year
  Sex: Male
  Weight: 74.5 kg

DRUGS (3)
  1. ERBITUX [Suspect]
     Indication: PANCREATIC CARCINOMA
     Dosage: 400 MG/M2   ONCE     IV DRIP; 250 MG/M2 WEEKLY IV DRIP
     Route: 041
  2. CYCLOPHOSPHAMIDE [Concomitant]
  3. ALLOGENEIC PANCREATIC CANCER VACCINE [Concomitant]

REACTIONS (13)
  - ANOREXIA [None]
  - ASCITES [None]
  - CONSTIPATION [None]
  - GASTROINTESTINAL DISORDER [None]
  - GASTROINTESTINAL HAEMORRHAGE [None]
  - LUNG CONSOLIDATION [None]
  - MALIGNANT NEOPLASM PROGRESSION [None]
  - MALIGNANT PERITONEAL NEOPLASM [None]
  - METASTASES TO LIVER [None]
  - NAUSEA [None]
  - PANCREATIC CARCINOMA METASTATIC [None]
  - PLEURAL EFFUSION [None]
  - VOMITING [None]
